FAERS Safety Report 23711861 (Version 5)
Quarter: 2024Q4

REPORT INFORMATION
  Report Type: Spontaneous
  Country: FR (occurrence: FR)
  Receive Date: 20240405
  Receipt Date: 20241001
  Transmission Date: 20250114
  Serious: Yes (Congenital Anomaly, Other)
  Sender: NOVARTIS
  Company Number: FR-002147023-NVSC2024FR072426

PATIENT
  Sex: Female
  Weight: 3.34 kg

DRUGS (1)
  1. GILENYA [Suspect]
     Active Substance: FINGOLIMOD HYDROCHLORIDE
     Indication: Foetal exposure during pregnancy
     Dosage: MATERNAL EXPOSURE DURING PREGNANCY, 0.5 MG QD TRANSPLACENTAL
     Route: 065

REACTIONS (4)
  - Ventricular septal defect [Unknown]
  - Cardiac murmur [Unknown]
  - Atrial septal defect [Unknown]
  - Foetal exposure during pregnancy [Unknown]
